FAERS Safety Report 21924658 (Version 1)
Quarter: 2023Q1

REPORT INFORMATION
  Report Type: Spontaneous
  Country: FR (occurrence: FR)
  Receive Date: 20230130
  Receipt Date: 20230130
  Transmission Date: 20230418
  Serious: Yes (Other)
  Sender: FDA-Public Use
  Company Number: FR-AMGEN-FRASP2023014034

PATIENT
  Age: 44 Year
  Sex: Female

DRUGS (3)
  1. PANITUMUMAB [Suspect]
     Active Substance: PANITUMUMAB
     Indication: Ovarian cancer
     Dosage: UNK
     Route: 065
  2. PANITUMUMAB [Suspect]
     Active Substance: PANITUMUMAB
     Indication: Off label use
  3. COBIMETINIB [Suspect]
     Active Substance: COBIMETINIB
     Indication: Ovarian cancer
     Dosage: UNK
     Route: 065

REACTIONS (5)
  - Endometrial cancer metastatic [Unknown]
  - Mucosal inflammation [Unknown]
  - Skin toxicity [Unknown]
  - Diarrhoea [Unknown]
  - Off label use [Unknown]
